FAERS Safety Report 16991633 (Version 1)
Quarter: 2019Q4

REPORT INFORMATION
  Report Type: Spontaneous
  Country: BR (occurrence: BR)
  Receive Date: 20191104
  Receipt Date: 20191104
  Transmission Date: 20200122
  Serious: Yes (Other)
  Sender: FDA-Public Use
  Company Number: BR-BAXTER-2019BAX021660

PATIENT
  Age: 46 Year
  Sex: Male
  Weight: 66 kg

DRUGS (32)
  1. PREDNISONE. [Suspect]
     Active Substance: PREDNISONE
     Indication: B-CELL LYMPHOMA
     Dosage: G-CHOP PROTOCOL
     Route: 065
     Dates: start: 20190918
  2. BACTRIM [Concomitant]
     Active Substance: SULFAMETHOXAZOLE\TRIMETHOPRIM
     Indication: PRODUCT USED FOR UNKNOWN INDICATION
     Route: 065
  3. GENUXAL [Suspect]
     Active Substance: CYCLOPHOSPHAMIDE
     Dosage: G-CHOP PROTOCOL, GENUXAL 1372.5 MG + 0.9 % SODIUM CHLORIDE, INFUSION: 30 MINUTES
     Route: 042
     Dates: start: 20190925
  4. CLORETO DE S?DIO - BAXTER [Suspect]
     Active Substance: SODIUM CHLORIDE
     Dosage: G-CHOP PROTOCOL, GENUXAL 1372.5 MG + 0.9 % SODIUM CHLORIDE, INFUSION: 30 MINUTES
     Route: 042
     Dates: start: 20190925
  5. DEXTROSE 5% SOLUTION [Suspect]
     Active Substance: DEXTROSE MONOHYDRATE
     Indication: MEDICATION DILUTION
     Dosage: G-CHOP PROTOCOL, FAULDOX + 5% DEXTROSE, INFUSION TIME: 10 MINS
     Route: 042
     Dates: start: 20190918
  6. GAZYVA [Suspect]
     Active Substance: OBINUTUZUMAB
     Dosage: G-CHOP PROTOCOL, GAZYVA + 0.9 % SODIUM CHLORIDE, INFUSION:4 HRS
     Route: 042
     Dates: start: 20190925
  7. FAULDVINCRI [Suspect]
     Active Substance: VINCRISTINE SULFATE
     Indication: B-CELL LYMPHOMA
     Dosage: G-CHOP PROTOCOL, FAULDVINCRI + 0.9 % SODIUM CHLORIDE
     Route: 040
     Dates: start: 20190918
  8. CLORETO DE S?DIO - BAXTER [Suspect]
     Active Substance: SODIUM CHLORIDE
     Dosage: DOSE RE-INTRODUCED, G-CHOP PROTOCOL, GAZYVA + 0.9 % SODIUM CHLORIDE
     Route: 042
     Dates: start: 201910
  9. PALONOSETRON. [Concomitant]
     Active Substance: PALONOSETRON HYDROCHLORIDE
     Indication: PRODUCT USED FOR UNKNOWN INDICATION
     Route: 065
  10. EMEND [Concomitant]
     Active Substance: APREPITANT
     Indication: PRODUCT USED FOR UNKNOWN INDICATION
     Route: 065
  11. GENUXAL [Suspect]
     Active Substance: CYCLOPHOSPHAMIDE
     Indication: B-CELL LYMPHOMA
     Dosage: G-CHOP PROTOCOL, GENUXAL + 0.9 % SODIUM CHLORIDE, INFUSION: 30 MINUTES
     Route: 042
     Dates: start: 20190918
  12. CLORETO DE S?DIO - BAXTER [Suspect]
     Active Substance: SODIUM CHLORIDE
     Dosage: G-CHOP PROTOCOL, FAULDVINCRI  +0.9 % SODIUM CHLORIDE
     Route: 040
     Dates: start: 20190925
  13. CLORETO DE S?DIO - BAXTER [Suspect]
     Active Substance: SODIUM CHLORIDE
     Dosage: DOSE RE-INTRODUCED, G-CHOP PROTOCOL, FAULDVINCRI +0.9 % SODIUM CHLORIDE
     Route: 042
     Dates: start: 201910
  14. FAULDVINCRI [Suspect]
     Active Substance: VINCRISTINE SULFATE
     Dosage: DOSE RE-INTRODUCED, G-CHOP PROTOCOL, FAULDVINCRI + 0.9 % SODIUM CHLORIDE
     Route: 040
     Dates: start: 201910
  15. FAULDOXO [Suspect]
     Active Substance: DOXORUBICIN HYDROCHLORIDE
     Dosage: DOSE RE-INTRODUCED, G-CHOP PROTOCOL, FAULDOX + 5% DEXTROSE
     Route: 042
     Dates: start: 201910
  16. ACICLOVIR [Concomitant]
     Active Substance: ACYCLOVIR
     Indication: PRODUCT USED FOR UNKNOWN INDICATION
     Route: 065
  17. ACETAMINOPHEN. [Concomitant]
     Active Substance: ACETAMINOPHEN
     Indication: PRODUCT USED FOR UNKNOWN INDICATION
     Route: 065
  18. DIPHENHYDRAMINE. [Concomitant]
     Active Substance: DIPHENHYDRAMINE
     Indication: PRODUCT USED FOR UNKNOWN INDICATION
     Route: 065
  19. DEXTROSE 5% SOLUTION [Suspect]
     Active Substance: DEXTROSE MONOHYDRATE
     Dosage: DOSE RE-INTRODUCED, FAULDOX+ 5% DEXTROSE
     Route: 042
     Dates: start: 201910
  20. GAZYVA [Suspect]
     Active Substance: OBINUTUZUMAB
     Indication: B-CELL LYMPHOMA
     Dosage: G-CHOP PROTOCOL, GAZYVA + 0.9 % SODIUM CHLORIDE, INFUSION:4 HRS
     Route: 042
     Dates: start: 20190918
  21. GAZYVA [Suspect]
     Active Substance: OBINUTUZUMAB
     Dosage: DOSE RE-INTRODUCED, G-CHOP PROTOCOL, GAZYVA + 0.9 % SODIUM CHLORIDE
     Route: 042
     Dates: start: 201910
  22. CLORETO DE S?DIO - BAXTER [Suspect]
     Active Substance: SODIUM CHLORIDE
     Dosage: G-CHOP PROTOCOL, GAZYVA + 0.9 % SODIUM CHLORIDE, INFUSION: 4 HRS
     Route: 042
     Dates: start: 20190925
  23. DEXTROSE 5% SOLUTION [Suspect]
     Active Substance: DEXTROSE MONOHYDRATE
     Dosage: G-CHOP PROTOCOL, FAULDOX + 5% DEXTROSE, INFUSION TIME: 10 MINS
     Route: 042
     Dates: start: 20190925
  24. FAULDVINCRI [Suspect]
     Active Substance: VINCRISTINE SULFATE
     Dosage: G-CHOP PROTOCOL, FAULDVINCRI + 0.9 % SODIUM CHLORIDE
     Route: 040
     Dates: start: 20190925
  25. FAULDOXO [Suspect]
     Active Substance: DOXORUBICIN HYDROCHLORIDE
     Indication: B-CELL LYMPHOMA
     Dosage: G-CHOP PROTOCOL, FAULDOX + 5% DEXTROSE, INFUSION TIME: 10 MINS
     Route: 042
     Dates: start: 20190918
  26. FAULDOXO [Suspect]
     Active Substance: DOXORUBICIN HYDROCHLORIDE
     Dosage: G-CHOP PROTOCOL, FAULDOX + 5% DEXTROSE, INFUSION TIME: 10 MINS
     Route: 042
     Dates: start: 20190925
  27. DEXAMETHASONE. [Concomitant]
     Active Substance: DEXAMETHASONE
     Indication: PRODUCT USED FOR UNKNOWN INDICATION
     Route: 065
  28. CLORETO DE S?DIO - BAXTER [Suspect]
     Active Substance: SODIUM CHLORIDE
     Indication: MEDICATION DILUTION
     Dosage: G-CHOP PROTOCOL, GENUXAL + 0.9 % SODIUM CHLORIDE, INFUSION: 30 MINUTES
     Route: 042
     Dates: start: 20190918
  29. CLORETO DE S?DIO - BAXTER [Suspect]
     Active Substance: SODIUM CHLORIDE
     Dosage: G-CHOP PROTOCOL, FAULDVINCRI +0.9 % SODIUM CHLORIDE
     Route: 040
     Dates: start: 20190918
  30. CLORETO DE S?DIO - BAXTER [Suspect]
     Active Substance: SODIUM CHLORIDE
     Dosage: DOSE RE-INTRODUCED, G-CHOP PROTOCOL, GENUXAL+ 0.9 % SODIUM CHLORIDE
     Route: 042
     Dates: start: 201910
  31. GENUXAL [Suspect]
     Active Substance: CYCLOPHOSPHAMIDE
     Dosage: DOSE RE-INTRODUCED, G-CHOP PROTOCOL, GENUXAL + 0.9 % SODIUM CHLORIDE
     Route: 042
     Dates: start: 201910
  32. CLORETO DE S?DIO - BAXTER [Suspect]
     Active Substance: SODIUM CHLORIDE
     Dosage: G-CHOP PROTOCOL, GAZYVA + 0.9 % SODIUM CHLORIDE, INFUSION: 4 HRS
     Route: 042
     Dates: start: 20190918

REACTIONS (1)
  - Neutropenia [Recovering/Resolving]

NARRATIVE: CASE EVENT DATE: 20191001
